FAERS Safety Report 9466032 (Version 1)
Quarter: 2013Q3

REPORT INFORMATION
  Report Type: Spontaneous
  Country: US (occurrence: None)
  Receive Date: 20130816
  Receipt Date: 20130816
  Transmission Date: 20140515
  Serious: Yes (Death)
  Sender: FDA-Public Use
  Company Number: None

PATIENT
  Age: 46 Year
  Sex: Female
  Weight: 80.4 kg

DRUGS (1)
  1. WARFARIN 7.5 MG JANTOVEN [Suspect]
     Indication: DEEP VEIN THROMBOSIS
     Dosage: 7.5 MG DAILY ORAL
     Route: 048

REACTIONS (4)
  - Intra-abdominal haemorrhage [None]
  - Shock haemorrhagic [None]
  - Haemoglobin decreased [None]
  - Haematocrit decreased [None]
